FAERS Safety Report 5398971-2 (Version None)
Quarter: 2007Q3

REPORT INFORMATION
  Report Type: 
  Country: None (occurrence: None)
  Receive Date: 20070727
  Receipt Date: 20070720
  Transmission Date: 20080115
  Serious: Yes (Hospitalization, Other)
  Sender: FDA-Public Use
  Company Number: HQWYE156220JUL07

PATIENT
  Age: 79 Year
  Sex: Male

DRUGS (1)
  1. SUMIAL [Suspect]
     Indication: DYSKINESIA
     Route: 048
     Dates: start: 20070323, end: 20070529

REACTIONS (2)
  - ATRIOVENTRICULAR BLOCK [None]
  - BRADYCARDIA [None]
